FAERS Safety Report 22086875 (Version 1)
Quarter: 2023Q1

REPORT INFORMATION
  Report Type: Report from Study
  Country: CO (occurrence: CO)
  Receive Date: 20230312
  Receipt Date: 20230312
  Transmission Date: 20230418
  Serious: Yes (Death, Other)
  Sender: FDA-Public Use
  Company Number: CO-002147023-NVSC2021CO297341

PATIENT
  Age: 74 Year
  Sex: Female

DRUGS (2)
  1. KISQALI [Suspect]
     Active Substance: RIBOCICLIB
     Indication: Hormone receptor positive HER2 negative breast cancer
     Dosage: 600 MG, QD
     Route: 048
  2. KISQALI [Suspect]
     Active Substance: RIBOCICLIB
     Dosage: 400 MG, QD
     Route: 048

REACTIONS (8)
  - Death [Fatal]
  - Metastases to central nervous system [Unknown]
  - Metastases to bone [Unknown]
  - Metastasis [Unknown]
  - Pain [Unknown]
  - Liver disorder [Unknown]
  - Renal disorder [Unknown]
  - Swelling [Unknown]

NARRATIVE: CASE EVENT DATE: 20230309
